FAERS Safety Report 4648193-5 (Version None)
Quarter: 2005Q2

REPORT INFORMATION
  Report Type: 
  Country: None (occurrence: None)
  Receive Date: 20050331
  Receipt Date: 20050112
  Transmission Date: 20051028
  Serious: No
  Sender: FDA-Public Use
  Company Number: 05P-163-0286395-00

PATIENT
  Age: 51 Year
  Sex: Female
  Weight: 55.3388 kg

DRUGS (8)
  1. HUMIRA [Suspect]
     Indication: RHEUMATOID ARTHRITIS
     Dosage: 40 MG, 1 IN 2 WK, SUBCUTANEOUS
     Route: 058
     Dates: start: 20040701
  2. ETANERCEPT [Concomitant]
  3. LOTREL [Concomitant]
  4. ESOMEPRAZOLE [Concomitant]
  5. FOLIC ACID [Concomitant]
  6. BUPROPION HYDROCHLORIDE [Concomitant]
  7. ALPRAZOLAM [Concomitant]
  8. FORTEO [Concomitant]

REACTIONS (4)
  - ABDOMINAL PAIN [None]
  - HEPATIC STEATOSIS [None]
  - HEPATOMEGALY [None]
  - ULTRASOUND BLADDER ABNORMAL [None]
